FAERS Safety Report 24865303 (Version 3)
Quarter: 2025Q3

REPORT INFORMATION
  Report Type: Spontaneous
  Country: US (occurrence: US)
  Receive Date: 20250121
  Receipt Date: 20250816
  Transmission Date: 20251021
  Serious: No
  Sender: ALEXION PHARMACEUTICALS
  Company Number: US-AstraZeneca-CH-00785283A

PATIENT
  Age: 6 Year
  Sex: Female

DRUGS (1)
  1. STRENSIQ [Suspect]
     Active Substance: ASFOTASE ALFA
     Indication: Hypophosphatasia
     Dosage: 6 MILLIGRAM/KILOGRAM, TIW
     Dates: start: 202412

REACTIONS (2)
  - Social avoidant behaviour [Unknown]
  - Depression [Unknown]
